FAERS Safety Report 12718471 (Version 2)
Quarter: 2016Q3

REPORT INFORMATION
  Report Type: Spontaneous
  Country: DE (occurrence: DE)
  Receive Date: 20160906
  Receipt Date: 20160912
  Transmission Date: 20161109
  Serious: Yes (Other)
  Sender: FDA-Public Use
  Company Number: DE-PFIZER INC-2016414444

PATIENT
  Age: 8 Year
  Sex: Male

DRUGS (1)
  1. PAMIDRONATE DISODIUM. [Suspect]
     Active Substance: PAMIDRONATE DISODIUM
     Dosage: 15 MG, 1X/DAY
     Route: 042
     Dates: start: 20160831

REACTIONS (2)
  - Product use issue [Unknown]
  - Procalcitonin increased [Unknown]
